FAERS Safety Report 4301380-8 (Version None)
Quarter: 2004Q1

REPORT INFORMATION
  Report Type: 
  Country: None (occurrence: None)
  Receive Date: 20040223
  Receipt Date: 20030922
  Transmission Date: 20041129
  Serious: No
  Sender: FDA-Public Use
  Company Number: US-GLAXOSMITHKLINE-A0426895A

PATIENT
  Age: 65 Year
  Sex: Female

DRUGS (2)
  1. NAVELBINE [Suspect]
     Indication: BREAST CANCER
     Route: 042
     Dates: start: 20030301
  2. ZOMETA [Concomitant]

REACTIONS (4)
  - BONE PAIN [None]
  - ERYTHEMA [None]
  - NERVOUSNESS [None]
  - PRURITUS [None]
